FAERS Safety Report 24130794 (Version 1)
Quarter: 2024Q3

REPORT INFORMATION
  Report Type: Spontaneous
  Country: JP (occurrence: JP)
  Receive Date: 20240724
  Receipt Date: 20240724
  Transmission Date: 20241016
  Serious: Yes (Hospitalization)
  Sender: AKEBIA THERAPEUTICS
  Company Number: JP-MTPC-MTPC2024-0014586

PATIENT
  Age: 9 Decade
  Sex: Female

DRUGS (1)
  1. VADADUSTAT [Suspect]
     Active Substance: VADADUSTAT
     Indication: Nephrogenic anaemia
     Dosage: 150 MILLIGRAM, QD
     Route: 048

REACTIONS (2)
  - Fall [Not Recovered/Not Resolved]
  - Fracture [Not Recovered/Not Resolved]
